FAERS Safety Report 9068739 (Version 1)
Quarter: 2013Q1

REPORT INFORMATION
  Report Type: Spontaneous
  Country: BR (occurrence: BR)
  Receive Date: 20130128
  Receipt Date: 20130128
  Transmission Date: 20140127
  Serious: Yes (Other)
  Sender: FDA-Public Use
  Company Number: BR-ROCHE-1014652

PATIENT
  Sex: Male
  Weight: 74 kg

DRUGS (1)
  1. ROACUTAN [Suspect]
     Indication: ACNE
     Route: 048
     Dates: start: 2008

REACTIONS (5)
  - Glomerulonephritis [Not Recovered/Not Resolved]
  - Haematuria [Not Recovered/Not Resolved]
  - Renal disorder [Unknown]
  - Rash macular [Not Recovered/Not Resolved]
  - Erythema [Unknown]
